FAERS Safety Report 8353067-2 (Version None)
Quarter: 2012Q2

REPORT INFORMATION
  Report Type: 
  Country: None (occurrence: None)
  Receive Date: 20120511
  Receipt Date: 20120509
  Transmission Date: 20120825
  Serious: No
  Sender: FDA-Public Use
  Company Number: US-PFIZER INC-2012113588

PATIENT
  Sex: Female

DRUGS (5)
  1. HYDROCODONE [Concomitant]
     Dosage: UNK
  2. NUCYNTA [Concomitant]
     Dosage: UNK
  3. CONZIP [Concomitant]
     Dosage: UNK
  4. CELEBREX [Suspect]
     Indication: PAIN
     Dosage: UNK
  5. OXYCODONE [Concomitant]
     Dosage: UNK

REACTIONS (4)
  - INFLUENZA LIKE ILLNESS [None]
  - MALAISE [None]
  - HEADACHE [None]
  - NAUSEA [None]
